FAERS Safety Report 8173177-2 (Version None)
Quarter: 2012Q1

REPORT INFORMATION
  Report Type: 
  Country: None (occurrence: None)
  Receive Date: 20120229
  Receipt Date: 20110523
  Transmission Date: 20120608
  Serious: No
  Sender: FDA-Public Use
  Company Number: US-GLAXOSMITHKLINE-A0929565A

PATIENT
  Age: 56 Year
  Sex: Female

DRUGS (4)
  1. TRIAMTERENE AND HYDROCHLOROTHIAZIDE [Suspect]
     Indication: PRODUCT USED FOR UNKNOWN INDICATION
     Route: 065
  2. SUMATRIPTAN [Suspect]
     Indication: PRODUCT USED FOR UNKNOWN INDICATION
     Route: 065
  3. DYAZIDE [Suspect]
     Indication: PRODUCT USED FOR UNKNOWN INDICATION
     Route: 048
     Dates: start: 19950610
  4. IMITREX [Suspect]
     Indication: PRODUCT USED FOR UNKNOWN INDICATION
     Dosage: 6MG UNKNOWN
     Route: 058
     Dates: start: 19950610

REACTIONS (3)
  - MUSCLE SPASMS [None]
  - RIB FRACTURE [None]
  - FALL [None]
